FAERS Safety Report 17620992 (Version 1)
Quarter: 2020Q2

REPORT INFORMATION
  Report Type: Spontaneous
  Country: GB (occurrence: GB)
  Receive Date: 20200403
  Receipt Date: 20200403
  Transmission Date: 20200713
  Serious: Yes (Hospitalization)
  Sender: FDA-Public Use
  Company Number: GB-PFIZER INC-2020135001

PATIENT
  Age: 47 Year
  Sex: Male

DRUGS (1)
  1. CELECOXIB. [Suspect]
     Active Substance: CELECOXIB
     Indication: PAIN
     Dosage: 200 MG, UNK
     Route: 048
     Dates: start: 20180601, end: 20180731

REACTIONS (3)
  - Oedema [Recovered/Resolved]
  - Jaundice [Recovered/Resolved]
  - Hepatitis E [Unknown]

NARRATIVE: CASE EVENT DATE: 201806
